FAERS Safety Report 16656385 (Version 1)
Quarter: 2019Q3

REPORT INFORMATION
  Report Type: Spontaneous
  Country: FR (occurrence: FR)
  Receive Date: 20190801
  Receipt Date: 20190801
  Transmission Date: 20191004
  Serious: Yes (Other)
  Sender: FDA-Public Use
  Company Number: -PACIRA-201500134

PATIENT
  Sex: Male

DRUGS (1)
  1. DEPOCYTE [Suspect]
     Active Substance: CYTARABINE
     Indication: PRODUCT USED FOR UNKNOWN INDICATION
     Dosage: UNK UNK, UNK, FREQUENCY : UNK
     Route: 065

REACTIONS (1)
  - Arachnoiditis [Unknown]
